FAERS Safety Report 23473335 (Version 1)
Quarter: 2024Q1

REPORT INFORMATION
  Report Type: Spontaneous
  Country: NL (occurrence: NL)
  Receive Date: 20240203
  Receipt Date: 20240203
  Transmission Date: 20240409
  Serious: Yes (Other)
  Sender: FDA-Public Use
  Company Number: None

PATIENT
  Age: 63 Year
  Sex: Female
  Weight: 64 kg

DRUGS (3)
  1. LEFLUNOMIDE [Suspect]
     Active Substance: LEFLUNOMIDE
     Indication: Psoriatic arthropathy
     Dosage: 1 PIECE ONCE PER DAY , BRAND NAME NOT SPECIFIED
     Route: 065
     Dates: start: 20230606
  2. GUSELKUMAB INJVLST [Concomitant]
     Indication: Product used for unknown indication
     Dosage: INJECTION FLUID, 100 MG/ML (MILLIGRAMS PER MILLILITER) / BRAND NAME NOT SPECIFIED
  3. DICLOFENAC SODIUM [Suspect]
     Active Substance: DICLOFENAC\DICLOFENAC SODIUM
     Indication: Psoriatic arthropathy
     Dosage: 1 PIECE TWICE A DAY , DICLOFENAC SODIUM TABLET MGA , BRAND NAME NOT SPECIFIED
     Route: 065
     Dates: start: 20230201

REACTIONS (2)
  - Fatigue [Not Recovered/Not Resolved]
  - Alopecia [Not Recovered/Not Resolved]
